FAERS Safety Report 24227931 (Version 2)
Quarter: 2025Q2

REPORT INFORMATION
  Report Type: Spontaneous
  Country: CN (occurrence: CN)
  Receive Date: 20240820
  Receipt Date: 20250608
  Transmission Date: 20250717
  Serious: Yes (Hospitalization)
  Sender: COHERUS
  Company Number: CN-SHANGHAI JUNSHI BIOSCIENCES CO., LTD.-CN2024010965

PATIENT

DRUGS (3)
  1. TORIPALIMAB [Suspect]
     Active Substance: TORIPALIMAB
     Indication: Gallbladder cancer
     Route: 041
     Dates: start: 20240717, end: 20240717
  2. GEMCITABINE HYDROCHLORIDE [Suspect]
     Active Substance: GEMCITABINE HYDROCHLORIDE
     Indication: Gallbladder cancer
     Route: 041
     Dates: start: 20240717, end: 20240724
  3. OXALIPLATIN [Suspect]
     Active Substance: OXALIPLATIN
     Indication: Gallbladder cancer
     Route: 041
     Dates: start: 20240717, end: 20240717

REACTIONS (2)
  - Myelosuppression [Recovering/Resolving]
  - Off label use [Unknown]

NARRATIVE: CASE EVENT DATE: 20240717
